FAERS Safety Report 16252656 (Version 3)
Quarter: 2019Q2

REPORT INFORMATION
  Report Type: Spontaneous
  Country: US (occurrence: IT)
  Receive Date: 20190429
  Receipt Date: 20190528
  Transmission Date: 20190711
  Serious: Yes (Hospitalization, Other)
  Sender: FDA-Public Use
  Company Number: US-BIOMARINAP-IT-2019-123338

PATIENT
  Age: 6 Year
  Sex: Male

DRUGS (2)
  1. ALDURAZYME [Suspect]
     Active Substance: LARONIDASE
     Indication: MUCOPOLYSACCHARIDOSIS I
     Dosage: 3 DOSAGE FORM, QW
     Route: 041
     Dates: start: 20140710
  2. LASIX [Concomitant]
     Active Substance: FUROSEMIDE
     Indication: PRODUCT USED FOR UNKNOWN INDICATION

REACTIONS (8)
  - Dyspnoea [Not Recovered/Not Resolved]
  - Tonsillitis [Not Recovered/Not Resolved]
  - Respiratory failure [Unknown]
  - Pneumonia mycoplasmal [Not Recovered/Not Resolved]
  - Cough [Unknown]
  - Mitral valve stenosis [Unknown]
  - Pyrexia [Not Recovered/Not Resolved]
  - Rhinorrhoea [Unknown]

NARRATIVE: CASE EVENT DATE: 20190414
